FAERS Safety Report 20883396 (Version 1)
Quarter: 2022Q2

REPORT INFORMATION
  Report Type: Spontaneous
  Country: US (occurrence: None)
  Receive Date: 20220526
  Receipt Date: 20220526
  Transmission Date: 20220721
  Serious: Yes (Hospitalization)
  Sender: FDA-Public Use
  Company Number: None

PATIENT
  Sex: Female

DRUGS (1)
  1. AMBRISENTAN [Suspect]
     Active Substance: AMBRISENTAN
     Indication: Pulmonary arterial hypertension
     Dosage: 10 MG ONCE DAILY ORAL?
     Route: 048
     Dates: start: 20210420

REACTIONS (5)
  - Pneumonia [None]
  - Headache [None]
  - Pain [None]
  - Arthralgia [None]
  - Pain in jaw [None]
